FAERS Safety Report 4882137-6 (Version None)
Quarter: 2006Q1

REPORT INFORMATION
  Report Type: 
  Country: None (occurrence: None)
  Receive Date: 20060117
  Receipt Date: 20051005
  Transmission Date: 20060701
  Serious: Yes (Hospitalization, Other)
  Sender: FDA-Public Use
  Company Number: US-MERCK-0510USA03912

PATIENT
  Age: 61 Year
  Sex: Male
  Weight: 95 kg

DRUGS (8)
  1. VIOXX [Suspect]
     Route: 048
     Dates: start: 19991027, end: 20010712
  2. ASPIRIN [Concomitant]
     Route: 065
  3. THEOPHYLLINE [Concomitant]
     Route: 065
  4. ROXICET [Concomitant]
     Route: 065
  5. LASIX [Concomitant]
     Route: 065
  6. NORVASC [Concomitant]
     Route: 065
  7. LORAZEPAM [Concomitant]
     Route: 065
  8. WELLBUTRIN [Concomitant]
     Indication: EX-SMOKER
     Route: 065

REACTIONS (57)
  - ABDOMINAL PAIN [None]
  - ACUTE RESPIRATORY FAILURE [None]
  - ANAEMIA [None]
  - ANGINA UNSTABLE [None]
  - AORTIC VALVE INCOMPETENCE [None]
  - AXILLARY VEIN THROMBOSIS [None]
  - BACK INJURY [None]
  - BRONCHITIS ACUTE [None]
  - CARDIAC FAILURE CONGESTIVE [None]
  - CAROTID ARTERY OCCLUSION [None]
  - CEREBRAL ARTERY OCCLUSION [None]
  - CEREBROVASCULAR ACCIDENT [None]
  - CHEST PAIN [None]
  - CHOLELITHIASIS [None]
  - COLONIC POLYP [None]
  - CONFUSIONAL STATE [None]
  - CORONARY ARTERY DISEASE [None]
  - CORONARY ARTERY STENOSIS [None]
  - DEEP VEIN THROMBOSIS [None]
  - DELIRIUM [None]
  - DEMENTIA [None]
  - DRUG ADMINISTRATION ERROR [None]
  - DRY EYE [None]
  - ELECTROCARDIOGRAM ABNORMAL [None]
  - EMBOLIC STROKE [None]
  - EROSIVE DUODENITIS [None]
  - GASTROINTESTINAL HAEMORRHAGE [None]
  - HAEMATURIA [None]
  - HEADACHE [None]
  - HEMIPARESIS [None]
  - HEPATIC CYST [None]
  - HIATUS HERNIA [None]
  - HYPERCHOLESTEROLAEMIA [None]
  - HYPERTENSION [None]
  - IRON DEFICIENCY ANAEMIA [None]
  - MITRAL VALVE INCOMPETENCE [None]
  - MYOCARDIAL ISCHAEMIA [None]
  - NEPHRITIC SYNDROME [None]
  - OEDEMA [None]
  - OPTIC DISC DRUSEN [None]
  - PNEUMONIA ASPIRATION [None]
  - PROTEINURIA [None]
  - RENAL CYST [None]
  - RENAL FAILURE [None]
  - RENAL FAILURE CHRONIC [None]
  - RENAL HAEMORRHAGE [None]
  - RENAL IMPAIRMENT [None]
  - RENAL TUBULAR DISORDER [None]
  - RESPIRATORY ACIDOSIS [None]
  - RESPIRATORY FAILURE [None]
  - SLEEP APNOEA SYNDROME [None]
  - TRICUSPID VALVE INCOMPETENCE [None]
  - UPPER GASTROINTESTINAL HAEMORRHAGE [None]
  - VASCULAR PSEUDOANEURYSM [None]
  - VENTRICULAR HYPERTROPHY [None]
  - VISUAL ACUITY REDUCED [None]
  - VISUAL DISTURBANCE [None]
